FAERS Safety Report 12467924 (Version 1)
Quarter: 2016Q2

REPORT INFORMATION
  Report Type: Spontaneous
  Country: US (occurrence: None)
  Receive Date: 20160614
  Receipt Date: 20160614
  Transmission Date: 20160815
  Serious: No
  Sender: FDA-Public Use
  Company Number: None

PATIENT
  Age: 69 Year
  Sex: Male
  Weight: 115.1 kg

DRUGS (2)
  1. SULFAMETHIZOLE/TRIMETHOPRIM [Suspect]
     Active Substance: SULFAMETHOXAZOLE\TRIMETHOPRIM
     Indication: INFECTION
     Dosage: 800/160 MG
     Route: 048
     Dates: start: 20160510, end: 20160513
  2. WARFARIN [Suspect]
     Active Substance: WARFARIN
     Indication: ATRIAL FIBRILLATION
     Dates: start: 20160329

REACTIONS (5)
  - Blood urea increased [None]
  - International normalised ratio increased [None]
  - Hyperkalaemia [None]
  - Haematocrit decreased [None]
  - Blood creatinine increased [None]

NARRATIVE: CASE EVENT DATE: 20160513
